FAERS Safety Report 6121195-8 (Version None)
Quarter: 2009Q1

REPORT INFORMATION
  Report Type: 
  Country: None (occurrence: None)
  Receive Date: 20090312
  Receipt Date: 20090312
  Transmission Date: 20090719
  Serious: Yes (Disabling, Other)
  Sender: FDA-Public Use
  Company Number: None

PATIENT
  Age: 37 Year
  Sex: Female
  Weight: 99.7913 kg

DRUGS (1)
  1. ISOSORBIDE MONONITRATE [Suspect]

REACTIONS (8)
  - CHEST PAIN [None]
  - GINGIVAL SWELLING [None]
  - HAEMORRHAGE [None]
  - PALPITATIONS [None]
  - PRODUCT QUALITY ISSUE [None]
  - RENAL DISORDER [None]
  - SWOLLEN TONGUE [None]
  - TACHYCARDIA [None]
